FAERS Safety Report 12124263 (Version 2)
Quarter: 2016Q1

REPORT INFORMATION
  Report Type: Spontaneous
  Country: CA (occurrence: CA)
  Receive Date: 20160228
  Receipt Date: 20160318
  Transmission Date: 20160526
  Serious: Yes (Other)
  Sender: FDA-Public Use
  Company Number: CA-ROCHE-1717212

PATIENT
  Age: 78 Year
  Sex: Male

DRUGS (8)
  1. CHLORAMBUCIL [Concomitant]
     Active Substance: CHLORAMBUCIL
     Indication: CHRONIC LYMPHOCYTIC LEUKAEMIA
     Dosage: DAYS 1 AND 15
     Route: 048
     Dates: start: 20151023, end: 20151109
  2. GAZYVA [Suspect]
     Active Substance: OBINUTUZUMAB
     Dosage: 100MG DAY 1, 900MG DAY 2, 1000MG DAYS 8 AND 15
     Route: 042
  3. ONDANSETRON [Concomitant]
     Active Substance: ONDANSETRON
     Indication: PROPHYLAXIS
     Dosage: PREVENTION OF NAUSEA AND VOMITING?FREQUENCY: DAYS 1 AND 15
     Route: 048
     Dates: start: 20151023, end: 20151109
  4. ALLOPURINOL. [Concomitant]
     Active Substance: ALLOPURINOL
     Indication: PROPHYLAXIS
     Route: 048
     Dates: start: 20151023
  5. GABAPENTIN. [Concomitant]
     Active Substance: GABAPENTIN
     Indication: NEURALGIA
     Route: 048
  6. GAZYVA [Suspect]
     Active Substance: OBINUTUZUMAB
     Dosage: DAYS 8
     Route: 042
  7. GAZYVA [Suspect]
     Active Substance: OBINUTUZUMAB
     Indication: CHRONIC LYMPHOCYTIC LEUKAEMIA
     Dosage: 100MG DAY 1, 900MG DAY 2, 1000MG DAYS 8 AND 15
     Route: 042
     Dates: start: 20151023
  8. GAZYVA [Suspect]
     Active Substance: OBINUTUZUMAB
     Dosage: DAYS 15?LAST DOSE OF INFUSION ON 09/NOV/2015
     Route: 042

REACTIONS (2)
  - Pneumonitis [Recovering/Resolving]
  - Pulmonary fibrosis [Unknown]

NARRATIVE: CASE EVENT DATE: 20151120
